FAERS Safety Report 18730049 (Version 1)
Quarter: 2021Q1

REPORT INFORMATION
  Report Type: Report from Study
  Country: US (occurrence: US)
  Receive Date: 20210112
  Receipt Date: 20210112
  Transmission Date: 20210419
  Serious: Yes (Hospitalization)
  Sender: FDA-Public Use
  Company Number: US-UCBSA-2020055361

PATIENT
  Age: 49 Year
  Sex: Female

DRUGS (2)
  1. LACOSAMIDE. [Suspect]
     Active Substance: LACOSAMIDE
     Indication: EPILEPSY
     Dosage: 200 MILLIGRAM, 2X/DAY (BID)
  2. LACOSAMIDE. [Suspect]
     Active Substance: LACOSAMIDE
     Indication: SEIZURE

REACTIONS (2)
  - Seizure [Not Recovered/Not Resolved]
  - Encephalopathy [Not Recovered/Not Resolved]

NARRATIVE: CASE EVENT DATE: 20201228
